FAERS Safety Report 18067797 (Version 1)
Quarter: 2020Q3

REPORT INFORMATION
  Report Type: Spontaneous
  Country: CN (occurrence: CN)
  Receive Date: 20200724
  Receipt Date: 20200724
  Transmission Date: 20201103
  Serious: Yes (Hospitalization, Other)
  Sender: FDA-Public Use
  Company Number: CN-ASTRAZENECA-2020SE92353

PATIENT
  Age: 28083 Day
  Sex: Female
  Weight: 50.8 kg

DRUGS (6)
  1. BRILINTA [Suspect]
     Active Substance: TICAGRELOR
     Indication: ANTIPLATELET THERAPY
     Route: 048
     Dates: start: 20200627, end: 20200627
  2. BAYASPIRIN [Concomitant]
     Active Substance: ASPIRIN
     Indication: ANTIPLATELET THERAPY
     Route: 048
     Dates: start: 20200627, end: 20200627
  3. BRILINTA [Suspect]
     Active Substance: TICAGRELOR
     Indication: ANTIPLATELET THERAPY
     Route: 048
     Dates: start: 20200627, end: 20200708
  4. BAYASPIRIN [Concomitant]
     Active Substance: ASPIRIN
     Indication: ANTIPLATELET THERAPY
     Route: 048
     Dates: start: 20200628, end: 20200716
  5. YOULIPING [Concomitant]
     Indication: LIPIDS ABNORMAL
     Route: 048
     Dates: start: 20200628, end: 20200702
  6. YOULIPING [Concomitant]
     Indication: LIPIDS ABNORMAL
     Route: 048
     Dates: start: 20200703, end: 20200716

REACTIONS (4)
  - Dyspnoea [Recovering/Resolving]
  - Suffocation feeling [Recovering/Resolving]
  - Sleep disorder [Recovering/Resolving]
  - Chest discomfort [Recovering/Resolving]

NARRATIVE: CASE EVENT DATE: 20200705
